FAERS Safety Report 19983871 (Version 1)
Quarter: 2021Q4

REPORT INFORMATION
  Report Type: Spontaneous
  Country: US (occurrence: US)
  Receive Date: 20211021
  Receipt Date: 20211021
  Transmission Date: 20220303
  Serious: No
  Sender: FDA-Public Use
  Company Number: None

PATIENT
  Age: 40 Year
  Sex: Female

DRUGS (3)
  1. HUMIRA [Suspect]
     Active Substance: ADALIMUMAB
     Indication: Ankylosing spondylitis
     Dosage: OTHER FREQUENCY:EVERY 14 DAYS ;
     Route: 058
     Dates: start: 20201016
  2. HUMIRA [Suspect]
     Active Substance: ADALIMUMAB
     Indication: Ankylosing spondylitis
  3. HUMIRA [Suspect]
     Active Substance: ADALIMUMAB
     Indication: Polyarthritis

REACTIONS (6)
  - Pain in extremity [None]
  - Arthralgia [None]
  - Pelvic pain [None]
  - Chest pain [None]
  - Back pain [None]
  - Pain [None]

NARRATIVE: CASE EVENT DATE: 20210901
